FAERS Safety Report 14636767 (Version 1)
Quarter: 2018Q1

REPORT INFORMATION
  Report Type: Spontaneous
  Country: FR (occurrence: FR)
  Receive Date: 20180314
  Receipt Date: 20180314
  Transmission Date: 20180509
  Serious: Yes (Hospitalization)
  Sender: FDA-Public Use
  Company Number: FR-TEVA-2018-FR-866860

PATIENT
  Age: 79 Year
  Sex: Female

DRUGS (8)
  1. CHRONADALATE [Suspect]
     Active Substance: NIFEDIPINE
     Indication: HYPERTENSION
     Route: 048
  2. STRESAM, GELULE [Concomitant]
     Active Substance: ETIFOXINE HYDROCHLORIDE
  3. MODOPAR [Concomitant]
     Active Substance: BENSERAZIDE HYDROCHLORIDE\LEVODOPA
  4. LESCOL [Concomitant]
     Active Substance: FLUVASTATIN SODIUM
  5. HYDROCHLOROTHIAZIDE. [Suspect]
     Active Substance: HYDROCHLOROTHIAZIDE
     Indication: HYPERTENSION
     Route: 048
  6. MANTADIX [Concomitant]
     Active Substance: AMANTADINE HYDROCHLORIDE
  7. DIFFU K [Concomitant]
     Active Substance: POTASSIUM CHLORIDE
  8. ENALAPRIL [Suspect]
     Active Substance: ENALAPRIL
     Indication: HYPERTENSION
     Route: 048

REACTIONS (3)
  - Orthostatic hypotension [Recovered/Resolved]
  - Rhabdomyolysis [Recovered/Resolved]
  - Fall [Recovered/Resolved with Sequelae]
